FAERS Safety Report 7888683-5 (Version None)
Quarter: 2011Q4

REPORT INFORMATION
  Report Type: 
  Country: None (occurrence: None)
  Receive Date: 20111103
  Receipt Date: 20111026
  Transmission Date: 20120403
  Serious: Yes (Hospitalization, Other)
  Sender: FDA-Public Use
  Company Number: JP-JNJFOC-20110803667

PATIENT
  Age: 5 Decade
  Sex: Male

DRUGS (5)
  1. UNKNOWN ADRENAL HORMONE PREPARATIONS [Concomitant]
     Indication: COLITIS ULCERATIVE
     Route: 065
  2. 5-AMINOSALICYLIC ACID [Concomitant]
     Indication: COLITIS ULCERATIVE
     Route: 065
  3. REMICADE [Suspect]
     Indication: COLITIS ULCERATIVE
     Dosage: DRUG ADMINSITERED AT 0, 2 AND 6, AND THEN 2 DOSES WERE GIVEN AT AN EIGHT WEEK INTERVAL
     Route: 042
  4. IMURAN [Suspect]
     Indication: COLITIS ULCERATIVE
     Route: 065
  5. ALL OTHER THERAPEUTICS [Concomitant]
     Indication: COLITIS ULCERATIVE
     Route: 065

REACTIONS (1)
  - DYSPLASIA [None]
